FAERS Safety Report 5254168-8 (Version None)
Quarter: 2007Q1

REPORT INFORMATION
  Report Type: 
  Country: None (occurrence: None)
  Receive Date: 20070302
  Receipt Date: 20070219
  Transmission Date: 20070707
  Serious: Yes (Disabling)
  Sender: FDA-Public Use
  Company Number: US-MERCK-0702USA03553

PATIENT
  Age: 59 Year
  Sex: Male

DRUGS (3)
  1. FOSAMAX [Suspect]
     Indication: OSTEOPOROSIS
     Route: 048
     Dates: start: 20020101
  2. ENBREL [Concomitant]
     Route: 065
  3. PREDNISONE [Concomitant]
     Route: 065

REACTIONS (5)
  - DENTAL CARIES [None]
  - DRY MOUTH [None]
  - JAW DISORDER [None]
  - TOOTH DISORDER [None]
  - TOOTH FRACTURE [None]
